FAERS Safety Report 7293985-X (Version None)
Quarter: 2011Q1

REPORT INFORMATION
  Report Type: 
  Country: None (occurrence: None)
  Receive Date: 20110215
  Receipt Date: 20110207
  Transmission Date: 20110831
  Serious: Yes (Death)
  Sender: FDA-Public Use
  Company Number: US-GILEAD-2010-0032049

PATIENT
  Sex: Female
  Weight: 56.296 kg

DRUGS (14)
  1. REVATIO [Concomitant]
  2. OMEPRAZOLE [Concomitant]
  3. HYDROXYCHLOROQUINE [Concomitant]
  4. PREDNISONE TAB [Concomitant]
  5. ZOLPIDEM [Concomitant]
  6. ROPINIROLE [Concomitant]
  7. WARFARIN [Concomitant]
  8. TYLENOL [Concomitant]
  9. ALENDRONATE [Concomitant]
  10. LETAIRIS [Suspect]
     Indication: PRODUCT USED FOR UNKNOWN INDICATION
     Route: 048
     Dates: start: 20100604
  11. CYCLOBENZAPRINE [Concomitant]
  12. NICOTINE [Concomitant]
  13. ALPRAZOLAM [Concomitant]
  14. CYMBALTA [Concomitant]

REACTIONS (2)
  - NEOPLASM MALIGNANT [None]
  - OEDEMA PERIPHERAL [None]
